FAERS Safety Report 14762963 (Version 1)
Quarter: 2018Q2

REPORT INFORMATION
  Report Type: Spontaneous
  Country: US (occurrence: US)
  Receive Date: 20180416
  Receipt Date: 20180416
  Transmission Date: 20180711
  Serious: No
  Sender: FDA-Public Use
  Company Number: US-VISTAPHARM, INC.-VER201802-000384

PATIENT
  Sex: Male

DRUGS (1)
  1. NYSTATIN ORAL SUSPENSION, USP 100,000 UNITS/ML [Suspect]
     Active Substance: NYSTATIN
     Indication: PRODUCT USED FOR UNKNOWN INDICATION
     Dosage: SUSPENSION

REACTIONS (1)
  - Abdominal pain upper [Unknown]
